FAERS Safety Report 8429275-9 (Version None)
Quarter: 2012Q2

REPORT INFORMATION
  Report Type: 
  Country: None (occurrence: None)
  Receive Date: 20120612
  Receipt Date: 20120611
  Transmission Date: 20120825
  Serious: Yes (Death, Other)
  Sender: FDA-Public Use
  Company Number: PHEH2012US011701

PATIENT
  Sex: Female

DRUGS (2)
  1. RECLAST [Suspect]
     Dosage: 5 MG, UNK
     Route: 042
     Dates: start: 20110628
  2. RECLAST [Suspect]
     Indication: OSTEOARTHRITIS
     Dosage: 5 MG, UNK
     Route: 042
     Dates: start: 20100601

REACTIONS (3)
  - LUNG DISORDER [None]
  - DEATH [None]
  - CEREBROVASCULAR ACCIDENT [None]
